FAERS Safety Report 6136839-4 (Version None)
Quarter: 2009Q1

REPORT INFORMATION
  Report Type: 
  Country: None (occurrence: None)
  Receive Date: 20090326
  Receipt Date: 20090326
  Transmission Date: 20090719
  Serious: Yes (Other)
  Sender: FDA-Public Use
  Company Number: None

PATIENT
  Age: 21 Year
  Sex: Male
  Weight: 78.4723 kg

DRUGS (1)
  1. PROPECIA [Suspect]
     Indication: ALOPECIA
     Dosage: 1 MG ONCE DAILY PO
     Route: 048
     Dates: start: 20090307, end: 20090315

REACTIONS (4)
  - GROIN PAIN [None]
  - PROSTATITIS [None]
  - SEMEN VISCOSITY DECREASED [None]
  - TESTICULAR PAIN [None]
